FAERS Safety Report 7091207-6 (Version None)
Quarter: 2010Q4

REPORT INFORMATION
  Report Type: 
  Country: None (occurrence: None)
  Receive Date: 20101109
  Receipt Date: 20100717
  Transmission Date: 20110411
  Serious: Yes (Death)
  Sender: FDA-Public Use
  Company Number: ZA-ROCHE-735814

PATIENT
  Age: 70 Year
  Sex: Female

DRUGS (2)
  1. HERCEPTIN [Suspect]
     Route: 065
  2. PACLITAXEL [Concomitant]
     Dosage: REPORTED AS TAXANE

REACTIONS (1)
  - MALIGNANT NEOPLASM PROGRESSION [None]
